FAERS Safety Report 13236914 (Version 1)
Quarter: 2017Q1

REPORT INFORMATION
  Report Type: Spontaneous
  Country: US (occurrence: US)
  Receive Date: 20170215
  Receipt Date: 20170215
  Transmission Date: 20170428
  Serious: No
  Sender: FDA-Public Use
  Company Number: US-SHIRE-US201702047

PATIENT
  Age: 66 Year
  Sex: Female
  Weight: 63.49 kg

DRUGS (3)
  1. XIIDRA [Suspect]
     Active Substance: LIFITEGRAST
     Indication: DRY EYE
     Dosage: 1 GTT (EACH EYE), 2X/DAY:BID
     Route: 047
     Dates: start: 20170123
  2. ESTRACE [Concomitant]
     Active Substance: ESTRADIOL
     Indication: HORMONE REPLACEMENT THERAPY
     Dosage: 0.5 MG, 1X/DAY:QD
     Route: 048
     Dates: start: 1976
  3. TOPAMAX [Concomitant]
     Active Substance: TOPIRAMATE
     Indication: MIGRAINE
     Dosage: 100 MG, 1X/DAY:QD
     Route: 048

REACTIONS (9)
  - Instillation site erythema [Recovered/Resolved]
  - Unevaluable event [Unknown]
  - Instillation site lacrimation [Recovered/Resolved]
  - Dysgeusia [Recovered/Resolved]
  - Eyelid margin crusting [Recovered/Resolved]
  - Instillation site discomfort [Recovered/Resolved]
  - Instillation site irritation [Recovered/Resolved]
  - Instillation site pain [Recovered/Resolved]
  - Drug ineffective [Not Recovered/Not Resolved]

NARRATIVE: CASE EVENT DATE: 20170123
